FAERS Safety Report 8092402-X (Version None)
Quarter: 2012Q1

REPORT INFORMATION
  Report Type: 
  Country: None (occurrence: None)
  Receive Date: 20120128
  Receipt Date: 20110831
  Transmission Date: 20120608
  Serious: No
  Sender: FDA-Public Use
  Company Number: US-ABBOTT-11P-163-0850929-00

PATIENT
  Sex: Female
  Weight: 63.56 kg

DRUGS (3)
  1. HUMIRA [Suspect]
     Indication: PSORIATIC ARTHROPATHY
     Dates: start: 20110601
  2. NEURONTIN [Concomitant]
     Indication: NEUROPATHY PERIPHERAL
  3. OPANA [Concomitant]
     Indication: ARTHRALGIA

REACTIONS (1)
  - PALPITATIONS [None]
